FAERS Safety Report 25367592 (Version 1)
Quarter: 2025Q2

REPORT INFORMATION
  Report Type: Spontaneous
  Country: CA (occurrence: CA)
  Receive Date: 20250528
  Receipt Date: 20250528
  Transmission Date: 20250716
  Serious: Yes (Death, Hospitalization, Other)
  Sender: MYLAN
  Company Number: CA-MYLANLABS-2025M1041537

PATIENT
  Age: 64 Year
  Sex: Female

DRUGS (25)
  1. CELEBREX [Suspect]
     Active Substance: CELECOXIB
     Indication: Pain
  2. DIOVAN [Suspect]
     Active Substance: VALSARTAN
     Indication: Product used for unknown indication
     Dosage: 80 MILLIGRAM, QD (1 EVERY 1 DAYS)
  3. DIOVAN [Suspect]
     Active Substance: VALSARTAN
     Dosage: 20 MILLIGRAM, MONTHLY (1 EVERY 1 MONTH)
  4. PANTOPRAZOLE [Suspect]
     Active Substance: PANTOPRAZOLE
     Indication: Product used for unknown indication
     Dosage: 40 MILLIGRAM, QD (1 EVERY 1 DAYS)
  5. PANTOPRAZOLE [Suspect]
     Active Substance: PANTOPRAZOLE
     Dosage: 600 MICROGRAM, QD (1 EVERY 1 DAYS)
  6. SANDOSTATIN [Suspect]
     Active Substance: OCTREOTIDE ACETATE
     Indication: Gastroenteropancreatic neuroendocrine tumour disease
     Dosage: 30 MILLIGRAM, MONTHLY (1 EVERY 1 MONTH)
  7. SANDOSTATIN [Suspect]
     Active Substance: OCTREOTIDE ACETATE
     Dosage: 60 MILLIGRAM, MONTHLY (1 EVERY 1 MONTH)
  8. SANDOSTATIN [Suspect]
     Active Substance: OCTREOTIDE ACETATE
     Dosage: 50 MILLIGRAM, MONTHLY (1 EVERY 1 MONTH)
  9. SANDOSTATIN [Suspect]
     Active Substance: OCTREOTIDE ACETATE
     Dosage: 30 MILLIGRAM, MONTHLY (1 EVERY 1 MONTH)
  10. SANDOSTATIN [Suspect]
     Active Substance: OCTREOTIDE ACETATE
     Dosage: 300 MICROGRAM, QD (1 EVERY 1 DAY)
  11. SANDOSTATIN [Suspect]
     Active Substance: OCTREOTIDE ACETATE
  12. SANDOSTATIN [Suspect]
     Active Substance: OCTREOTIDE ACETATE
     Dosage: 30 MILLIGRAM, MONTHLY (1 EVERY 1 MONTH)
  13. SANDOSTATIN [Suspect]
     Active Substance: OCTREOTIDE ACETATE
     Dosage: 20 MILLIGRAM, MONTHLY (1 EVERY 1 MONTH)
  14. SANDOSTATIN [Suspect]
     Active Substance: OCTREOTIDE ACETATE
     Dosage: 20 MILLIGRAM, MONTHLY (1 EVERY 1 MONTH)
  15. SANDOSTATIN [Suspect]
     Active Substance: OCTREOTIDE ACETATE
     Dosage: 600 MICROGRAM, QD (1 EVERY 1 DAYS)
  16. VALSARTAN [Suspect]
     Active Substance: VALSARTAN
     Indication: Product used for unknown indication
     Dosage: 160 MILLIGRAM, QD (1 EVERY 1 DAY)
  17. VALSARTAN [Suspect]
     Active Substance: VALSARTAN
     Dosage: 30 MILLIGRAM, MONTHLY (1 EVERY 1 MONTH)
  18. CLONAZEPAM [Concomitant]
     Active Substance: CLONAZEPAM
     Indication: Product used for unknown indication
     Dosage: 50 MILLIGRAM, MONTHLY (1 EVERY 1 MONTH)
  19. CLONAZEPAM [Concomitant]
     Active Substance: CLONAZEPAM
  20. CLONAZEPAM [Concomitant]
     Active Substance: CLONAZEPAM
  21. DILTIAZEM [Concomitant]
     Active Substance: DILTIAZEM
     Indication: Product used for unknown indication
     Dosage: 300 MICROGRAM, QD (1 EVERY 1 DAYS)
  22. DILTIAZEM [Concomitant]
     Active Substance: DILTIAZEM
     Dosage: 300 MICROGRAM, QD (1 EVERY 1 DAYS)
  23. DILTIAZEM [Concomitant]
     Active Substance: DILTIAZEM
     Dosage: 160 MILLIGRAM, QD (1 EVERY 1 DAYS)
  24. IMODIUM [Concomitant]
     Active Substance: LOPERAMIDE HYDROCHLORIDE
     Indication: Product used for unknown indication
     Dosage: 30 MILLIGRAM, MONTHLY (1 EVERY 1 MONTHLY)
  25. IMODIUM [Concomitant]
     Active Substance: LOPERAMIDE HYDROCHLORIDE

REACTIONS (38)
  - Death [Fatal]
  - Abdominal distension [Fatal]
  - Abdominal pain [Fatal]
  - Alopecia [Fatal]
  - Back pain [Fatal]
  - Blood pressure diastolic decreased [Fatal]
  - Blood pressure increased [Fatal]
  - Brain neoplasm [Fatal]
  - Cardiac disorder [Fatal]
  - Chest pain [Fatal]
  - Coma [Fatal]
  - Confusional state [Fatal]
  - Constipation [Fatal]
  - Cough [Fatal]
  - Decreased appetite [Fatal]
  - Diarrhoea [Fatal]
  - Ear pain [Fatal]
  - Fatigue [Fatal]
  - Flushing [Fatal]
  - Headache [Fatal]
  - Heart rate decreased [Fatal]
  - Hepatic pain [Fatal]
  - Injection site pain [Fatal]
  - Loss of consciousness [Fatal]
  - Memory impairment [Fatal]
  - Myalgia [Fatal]
  - Nausea [Fatal]
  - Oedema peripheral [Fatal]
  - Oropharyngeal pain [Fatal]
  - Osteoarthritis [Fatal]
  - Pain [Fatal]
  - Pain in extremity [Fatal]
  - Pancreatic disorder [Fatal]
  - Pneumonia [Fatal]
  - Rhinorrhoea [Fatal]
  - Second primary malignancy [Fatal]
  - Cerebrovascular accident [Fatal]
  - Drug ineffective [Fatal]
